FAERS Safety Report 4826390-3 (Version None)
Quarter: 2005Q4

REPORT INFORMATION
  Report Type: 
  Country: None (occurrence: None)
  Receive Date: 20051014
  Receipt Date: 20050726
  Transmission Date: 20060501
  Serious: No
  Sender: FDA-Public Use
  Company Number: 2005SP002078

PATIENT
  Age: 49 Year
  Sex: Female
  Weight: 78.0187 kg

DRUGS (4)
  1. LUNESTA [Suspect]
     Indication: INSOMNIA
     Dosage: 2 MG;HS;ORAL
     Route: 048
     Dates: start: 20050706, end: 20050808
  2. COMPAZINE [Suspect]
     Dates: start: 20050722
  3. PROMETHAZINE [Concomitant]
  4. LORTAB [Concomitant]

REACTIONS (4)
  - COUGH [None]
  - DRUG EFFECT DECREASED [None]
  - DYSGEUSIA [None]
  - RETCHING [None]
